FAERS Safety Report 8104304 (Version 8)
Quarter: 2012Q4

REPORT INFORMATION
  Report Type: 
  Country: US (occurrence: US)
  Receive Date: 20110824
  Receipt Date: 20120913
  Transmission Date: 20130627
  Serious: Yes (Hospitalization, Disabling, Other)
  Sender: FDA-Public Use
  Company Number: US-009507513-1108USA02804

PATIENT

DRUGS (13)
  1. FOSAMAX [Suspect]
     Indication: OSTEOPENIA
     Dosage: 10 mg, qd
     Route: 048
     Dates: start: 19990729, end: 200103
  2. FOSAMAX [Suspect]
     Indication: OSTEOPOROSIS
     Dosage: 70 mg, UNK
     Route: 048
     Dates: start: 20010418, end: 200501
  3. VITAMIN D (UNSPECIFIED) [Concomitant]
     Dosage: 1000 mg, UNK
     Dates: start: 1990
  4. CALCIUM (UNSPECIFIED) [Concomitant]
     Dosage: 500-600
     Dates: start: 1990
  5. MK-9278 [Concomitant]
     Dosage: UNK UNK, qd
     Dates: start: 1990
  6. FOSAMAX PLUS D [Suspect]
     Indication: OSTEOPENIA
     Dosage: 70 mg, UNK
     Route: 048
     Dates: start: 20080229, end: 201003
  7. FOSAMAX PLUS D [Suspect]
     Indication: OSTEOPOROSIS
  8. PREMPRO [Concomitant]
     Dates: start: 1993
  9. CALCIUM (UNSPECIFIED) (+) VITAMIN D (UNSPECIFIED) [Concomitant]
     Dosage: 1200 mg, UNK
     Dates: start: 20000321
  10. BONIVA [Suspect]
     Indication: OSTEOPOROSIS
     Dosage: UNK UNK, QM
     Dates: start: 200502, end: 200801
  11. BONIVA [Suspect]
     Indication: OSTEOPENIA
  12. HORMONES (UNSPECIFIED) [Concomitant]
  13. RABIES IMMUNE GLOBULIN [Concomitant]
     Indication: ANIMAL BITE

REACTIONS (54)
  - Femur fracture [Not Recovered/Not Resolved]
  - Low turnover osteopathy [Not Recovered/Not Resolved]
  - Femur fracture [Recovered/Resolved]
  - Vascular pseudoaneurysm [Unknown]
  - Deep vein thrombosis [Unknown]
  - Haematoma [Unknown]
  - Intervertebral disc degeneration [Unknown]
  - Foot fracture [Unknown]
  - Vitamin D deficiency [Unknown]
  - Calcium deficiency [Unknown]
  - Adverse event [Unknown]
  - Renal impairment [Unknown]
  - Traumatic haematoma [Unknown]
  - Bunion [Unknown]
  - Meniscus injury [Unknown]
  - Weight increased [Unknown]
  - Inflammation [Unknown]
  - Vulva cyst [Unknown]
  - Tendon disorder [Unknown]
  - Foot deformity [Unknown]
  - Osteochondritis [Unknown]
  - Skin discolouration [Unknown]
  - Anaemia postoperative [Unknown]
  - Anxiety [Not Recovered/Not Resolved]
  - Limb asymmetry [Unknown]
  - Spondylolisthesis [Unknown]
  - Sciatica [Unknown]
  - Scoliosis [Unknown]
  - Scoliosis [Unknown]
  - Neuritis [Unknown]
  - Spondylolysis [Unknown]
  - Compression fracture [Unknown]
  - Intervertebral disc protrusion [Unknown]
  - Normochromic normocytic anaemia [Unknown]
  - Myositis [Unknown]
  - Arterial disorder [Unknown]
  - Tinnitus [Unknown]
  - Balance disorder [Unknown]
  - Aortic disorder [Unknown]
  - Aortic calcification [Unknown]
  - Fall [Unknown]
  - Vascular dissection [Unknown]
  - Foot fracture [Unknown]
  - Osteoarthritis [Unknown]
  - Skeletal injury [Unknown]
  - Temporomandibular joint syndrome [Unknown]
  - Foot deformity [Unknown]
  - Varicose vein [Unknown]
  - Animal bite [Unknown]
  - Pain in extremity [Unknown]
  - Muscle spasms [Unknown]
  - Drug ineffective [Unknown]
  - Rash [Unknown]
  - Intramedullary rod insertion [Unknown]
